FAERS Safety Report 4760880-7 (Version None)
Quarter: 2005Q3

REPORT INFORMATION
  Report Type: 
  Country: None (occurrence: None)
  Receive Date: 20050901
  Receipt Date: 20050822
  Transmission Date: 20060218
  Serious: Yes (Hospitalization, Other)
  Sender: FDA-Public Use
  Company Number: HQWYE344209JUN05

PATIENT
  Age: 76 Year
  Sex: Female
  Weight: 47.6 kg

DRUGS (3)
  1. MYLOTARG [Suspect]
     Indication: ACUTE MYELOID LEUKAEMIA
     Dosage: 13.4 MG 1X PER 1 DAY, INTRAVENOUS
     Route: 042
     Dates: start: 20050428, end: 20050428
  2. MYLOTARG [Suspect]
     Indication: ACUTE MYELOID LEUKAEMIA
     Dosage: 13.4 MG 1X PER 1 DAY, INTRAVENOUS
     Route: 042
     Dates: start: 20050513, end: 20050513
  3. ALLOPURINOL [Concomitant]

REACTIONS (7)
  - BLOOD URIC ACID DECREASED [None]
  - CRACKLES LUNG [None]
  - FEBRILE NEUTROPENIA [None]
  - HAEMOGLOBIN DECREASED [None]
  - HYPOXIA [None]
  - PLATELET COUNT DECREASED [None]
  - TUMOUR LYSIS SYNDROME [None]
